FAERS Safety Report 19747101 (Version 3)
Quarter: 2021Q4

REPORT INFORMATION
  Report Type: Spontaneous
  Country: IN (occurrence: IN)
  Receive Date: 20210825
  Receipt Date: 20211005
  Transmission Date: 20220304
  Serious: Yes (Other)
  Sender: FDA-Public Use
  Company Number: IN-PFIZER INC-202101000895

PATIENT
  Age: 43 Year
  Sex: Female

DRUGS (2)
  1. AROMASIN [Suspect]
     Active Substance: EXEMESTANE
     Indication: Breast cancer metastatic
     Dosage: UNK
     Dates: start: 202102
  2. AROMASIN [Suspect]
     Active Substance: EXEMESTANE
     Dosage: 25 MG, 1X/DAY
     Route: 048
     Dates: start: 20210423

REACTIONS (13)
  - Oedematous kidney [Unknown]
  - Hydronephrosis [Unknown]
  - Haematuria [Unknown]
  - Back pain [Unknown]
  - Costovertebral angle tenderness [Unknown]
  - Ventricular septal defect [Unknown]
  - Pulmonary congestion [Unknown]
  - Cough [Unknown]
  - Oropharyngeal pain [Unknown]
  - Skin lesion [Unknown]
  - Hepatomegaly [Unknown]
  - Vaginal lesion [Unknown]
  - Neoplasm progression [Unknown]

NARRATIVE: CASE EVENT DATE: 20210626
